FAERS Safety Report 14091897 (Version 1)
Quarter: 2017Q4

REPORT INFORMATION
  Report Type: Report from Study
  Country: NL (occurrence: NL)
  Receive Date: 20171016
  Receipt Date: 20171016
  Transmission Date: 20180321
  Serious: Yes (Other)
  Sender: FDA-Public Use
  Company Number: PHHO2014NL021200

PATIENT
  Sex: Male
  Weight: 75 kg

DRUGS (2)
  1. DABRAFENIB [Suspect]
     Active Substance: DABRAFENIB
     Indication: METASTATIC MALIGNANT MELANOMA
     Dosage: 75 MG BID FROM 23 APRIL 2014 TO 03 MAY 201475 MG BID FROM 05 MAY 201475 MG BID FROM 23 MAY 2014[...]
     Route: 048
     Dates: start: 20131014
  2. TRAMETINIB [Suspect]
     Active Substance: TRAMETINIB
     Indication: METASTATIC MALIGNANT MELANOMA
     Dosage: 2 MG OD TO 16 MAY 20142 MG OD FROM 23 MAY 2014
     Route: 048
     Dates: start: 20131014

REACTIONS (4)
  - Electrocardiogram QT prolonged [Recovered/Resolved]
  - Chills [Recovered/Resolved]
  - Electrocardiogram QT prolonged [Recovered/Resolved]
  - Pyrexia [Recovered/Resolved]

NARRATIVE: CASE EVENT DATE: 20140503
